FAERS Safety Report 15456540 (Version 1)
Quarter: 2018Q4

REPORT INFORMATION
  Report Type: Spontaneous
  Country: IN (occurrence: IN)
  Receive Date: 20181002
  Receipt Date: 20181002
  Transmission Date: 20190204
  Serious: Yes (Other)
  Sender: FDA-Public Use
  Company Number: IN-PFIZER INC-2018393004

PATIENT
  Age: 81 Year
  Sex: Male

DRUGS (2)
  1. CAMPTO [Suspect]
     Active Substance: IRINOTECAN
     Indication: METASTATIC NEOPLASM
     Dosage: 140 MG, UNK
     Route: 042
     Dates: start: 20180919
  2. CAMPTO [Suspect]
     Active Substance: IRINOTECAN
     Dosage: 140 MG, UNK
     Route: 042
     Dates: start: 20180919

REACTIONS (1)
  - Haemoglobin decreased [Unknown]
